FAERS Safety Report 9285767 (Version 1)
Quarter: 2013Q2

REPORT INFORMATION
  Report Type: Spontaneous
  Country: US (occurrence: US)
  Receive Date: 20130513
  Receipt Date: 20130513
  Transmission Date: 20140414
  Serious: Yes (Other)
  Sender: FDA-Public Use
  Company Number: US-PFIZER INC-2013146871

PATIENT
  Age: 55 Year
  Sex: Female
  Weight: 62.59 kg

DRUGS (4)
  1. CHANTIX [Suspect]
     Indication: SMOKING CESSATION THERAPY
     Dosage: 1 MG, 2X/DAY
     Route: 048
     Dates: start: 2012, end: 2012
  2. CHANTIX [Suspect]
     Dosage: 1 MG, 2X/DAY
     Route: 048
     Dates: start: 2012, end: 2012
  3. CLONAZEPAM [Concomitant]
     Indication: ANXIETY DISORDER
     Dosage: 1 MG, 4X/DAY
  4. OXYCODONE HYDROCHLORIDE [Concomitant]
     Indication: BACK PAIN
     Dosage: 10 MG, 4X/DAY

REACTIONS (1)
  - Pneumonitis [Unknown]
